FAERS Safety Report 19429667 (Version 1)
Quarter: 2021Q2

REPORT INFORMATION
  Report Type: Spontaneous
  Country: US (occurrence: US)
  Receive Date: 20210617
  Receipt Date: 20210617
  Transmission Date: 20210717
  Serious: No
  Sender: FDA-Public Use
  Company Number: US-PFIZER INC-2021304679

PATIENT
  Age: 67 Year
  Sex: Female
  Weight: 75.75 kg

DRUGS (4)
  1. PEPCID [Suspect]
     Active Substance: FAMOTIDINE
     Dosage: UNK
  2. BENADRYL [Suspect]
     Active Substance: DIPHENHYDRAMINE HYDROCHLORIDE
     Indication: URTICARIA
     Dosage: UNK
  3. MEDROL [Suspect]
     Active Substance: METHYLPREDNISOLONE
     Indication: URTICARIA
     Dosage: UNK
  4. ZYRTEC [Suspect]
     Active Substance: CETIRIZINE HYDROCHLORIDE
     Indication: URTICARIA
     Dosage: UNK

REACTIONS (1)
  - Drug ineffective [Unknown]
